FAERS Safety Report 4355986-0 (Version None)
Quarter: 2004Q2

REPORT INFORMATION
  Report Type: 
  Country: None (occurrence: None)
  Receive Date: 20040507
  Receipt Date: 20040507
  Transmission Date: 20050107
  Serious: Yes (Hospitalization)
  Sender: FDA-Public Use
  Company Number: None

PATIENT
  Age: 52 Year
  Sex: Female

DRUGS (1)
  1. GLIPIZIDE ER 10MG ANDRX [Suspect]
     Indication: DIABETES MELLITUS
     Dosage: 1 PO QD
     Route: 048
     Dates: start: 20040422, end: 20040425

REACTIONS (2)
  - HYPOGLYCAEMIA [None]
  - PHARMACEUTICAL PRODUCT COMPLAINT [None]
